FAERS Safety Report 6313141-9 (Version None)
Quarter: 2009Q3

REPORT INFORMATION
  Report Type: 
  Country: None (occurrence: None)
  Receive Date: 20090818
  Receipt Date: 20090812
  Transmission Date: 20100115
  Serious: Yes (Hospitalization)
  Sender: FDA-Public Use
  Company Number: NL-AVENTIS-200918720GDDC

PATIENT
  Age: 74 Year
  Sex: Male

DRUGS (2)
  1. DOCETAXEL [Suspect]
     Route: 042
     Dates: start: 20090504, end: 20090729
  2. CARBOPLATIN [Suspect]
     Route: 042
     Dates: start: 20090504, end: 20090729

REACTIONS (1)
  - DELIRIUM [None]
